FAERS Safety Report 22139876 (Version 2)
Quarter: 2023Q2

REPORT INFORMATION
  Report Type: Spontaneous
  Country: US (occurrence: US)
  Receive Date: 20230327
  Receipt Date: 20230405
  Transmission Date: 20230721
  Serious: No
  Sender: FDA-Public Use
  Company Number: US-GSKCCFUS-Case-01656827_AE-93521

PATIENT
  Age: 52 Year
  Sex: Female

DRUGS (1)
  1. BENLYSTA [Suspect]
     Active Substance: BELIMUMAB
     Indication: Product used for unknown indication
     Dosage: 1 PUFF(S), 5D
     Dates: start: 20230316

REACTIONS (3)
  - Injection site haemorrhage [Recovered/Resolved]
  - Overdose [Unknown]
  - Product complaint [Unknown]

NARRATIVE: CASE EVENT DATE: 20230316
